FAERS Safety Report 6285638-1 (Version None)
Quarter: 2009Q3

REPORT INFORMATION
  Report Type: 
  Country: None (occurrence: None)
  Receive Date: 20090724
  Receipt Date: 20090713
  Transmission Date: 20100115
  Serious: Yes (Death, Other)
  Sender: FDA-Public Use
  Company Number: MC200900251

PATIENT

DRUGS (6)
  1. ANGIOMAX [Suspect]
     Indication: PERCUTANEOUS CORONARY INTERVENTION
     Dosage: INTRAVENOUS
     Route: 042
  2. EPTIFIBATIDE (EPTIFIBATIDE) [Suspect]
     Indication: PERCUTANEOUS CORONARY INTERVENTION
  3. HEPARIN [Suspect]
     Indication: PERCUTANEOUS CORONARY INTERVENTION
  4. ENOXAPARIN SODIUM [Suspect]
     Indication: PERCUTANEOUS CORONARY INTERVENTION
  5. ASPIRIN [Concomitant]
  6. CLOPIDOGREL [Concomitant]

REACTIONS (2)
  - MYOCARDIAL INFARCTION [None]
  - MYOCARDIAL ISCHAEMIA [None]
